FAERS Safety Report 9908583 (Version 1)
Quarter: 2014Q1

REPORT INFORMATION
  Report Type: Report from Study
  Country: US (occurrence: US)
  Receive Date: 20140219
  Receipt Date: 20140219
  Transmission Date: 20141002
  Serious: Yes (Death)
  Sender: FDA-Public Use
  Company Number: US-ROCHE-1331442

PATIENT
  Age: 62 Year
  Sex: Male
  Weight: 75.91 kg

DRUGS (8)
  1. AVASTIN [Suspect]
     Indication: COLON CANCER
     Route: 065
     Dates: start: 20111207
  2. AVASTIN [Suspect]
     Indication: METASTASES TO NERVOUS SYSTEM
  3. XELODA [Suspect]
     Indication: COLON CANCER
     Route: 065
  4. XELODA [Suspect]
     Indication: METASTASES TO NERVOUS SYSTEM
  5. OXALIPLATIN [Concomitant]
  6. 5-FU [Concomitant]
  7. FOLINIC ACID [Concomitant]
  8. IRINOTECAN [Concomitant]

REACTIONS (1)
  - Death [Fatal]
